FAERS Safety Report 19888305 (Version 1)
Quarter: 2021Q3

REPORT INFORMATION
  Report Type: Spontaneous
  Country: US (occurrence: US)
  Receive Date: 20210927
  Receipt Date: 20210927
  Transmission Date: 20211014
  Serious: Yes (Hospitalization)
  Sender: FDA-Public Use
  Company Number: None

PATIENT
  Age: 66 Year
  Sex: Male
  Weight: 63.8 kg

DRUGS (3)
  1. PENICILLIN [Concomitant]
     Active Substance: PENICILLIN
  2. AUGMENTIN [Concomitant]
     Active Substance: AMOXICILLIN\CLAVULANATE POTASSIUM
  3. PRALATREXATE [Suspect]
     Active Substance: PRALATREXATE
     Indication: T-CELL LYMPHOMA
     Route: 042
     Dates: start: 20210826

REACTIONS (6)
  - Pyrexia [None]
  - Oral pain [None]
  - Alveolar osteitis [None]
  - Asthenia [None]
  - Decreased appetite [None]
  - Failure to thrive [None]

NARRATIVE: CASE EVENT DATE: 20210911
